FAERS Safety Report 8472898-1 (Version None)
Quarter: 2012Q2

REPORT INFORMATION
  Report Type: 
  Country: None (occurrence: None)
  Receive Date: 20120627
  Receipt Date: 20120529
  Transmission Date: 20120825
  Serious: Yes (Other)
  Sender: FDA-Public Use
  Company Number: CN-B.I. PHARMACEUTICALS,INC./RIDGEFIELD-2012-BP-14481YA

PATIENT
  Sex: Male

DRUGS (2)
  1. TAMSULOSIN HCL [Suspect]
     Indication: BENIGN PROSTATIC HYPERPLASIA
     Route: 048
     Dates: start: 20100818, end: 20100821
  2. PROSCAR [Concomitant]
     Dates: start: 20100818

REACTIONS (1)
  - ANAPHYLACTOID REACTION [None]
